FAERS Safety Report 14369348 (Version 1)
Quarter: 2018Q1

REPORT INFORMATION
  Report Type: Spontaneous
  Country: US (occurrence: US)
  Receive Date: 20180109
  Receipt Date: 20180109
  Transmission Date: 20180509
  Serious: Yes (Other)
  Sender: FDA-Public Use
  Company Number: US-BAXTER-2017BAX046208

PATIENT
  Age: 59 Year
  Sex: Female

DRUGS (3)
  1. LIDOCAINE HYDROCHLORIDE AND 5% DEXTROSE INJECTION, USP [Suspect]
     Active Substance: LIDOCAINE HYDROCHLORIDE
     Dosage: WITH FIVE 50 MG BOLUSES (6MG/KG) OF EVERY FIVE MINUTES
     Route: 041
  2. LIDOCAINE HYDROCHLORIDE AND 5% DEXTROSE INJECTION, USP [Suspect]
     Active Substance: LIDOCAINE HYDROCHLORIDE
     Indication: FIBROMYALGIA
     Dosage: FIVE 50 MG BOLUSES (6MG/KG) EVERY FIVE MINUTES WITH A BACKGROUND CONTINUOUS INFUSION RATE OF 50 MG G
     Route: 040
  3. LIDOCAINE HYDROCHLORIDE AND 5% DEXTROSE INJECTION, USP [Suspect]
     Active Substance: LIDOCAINE HYDROCHLORIDE
     Dosage: INFUSION, 3MG/KG
     Route: 042

REACTIONS (1)
  - Hypertension [Recovered/Resolved]
